FAERS Safety Report 23226059 (Version 2)
Quarter: 2023Q4

REPORT INFORMATION
  Report Type: Report from Study
  Country: MA (occurrence: MA)
  Receive Date: 20231124
  Receipt Date: 20231128
  Transmission Date: 20240110
  Serious: Yes (Death)
  Sender: FDA-Public Use
  Company Number: MA-002147023-NVSC2023MA249910

PATIENT
  Sex: Male

DRUGS (1)
  1. AFINITOR [Suspect]
     Active Substance: EVEROLIMUS
     Indication: Leukaemia
     Dosage: 1 DOSAGE FORM, QD (5 MG)
     Route: 048
     Dates: start: 202307

REACTIONS (2)
  - Death [Fatal]
  - Product use in unapproved indication [Unknown]
